FAERS Safety Report 10525689 (Version 2)
Quarter: 2016Q1

REPORT INFORMATION
  Report Type: Report from Study
  Country: BR (occurrence: BR)
  Receive Date: 20141017
  Receipt Date: 20160218
  Transmission Date: 20160525
  Serious: Yes (Other)
  Sender: FDA-Public Use
  Company Number: PHHY2014BR134093

PATIENT
  Sex: Female
  Weight: 46 kg

DRUGS (3)
  1. RIVOTRIL [Concomitant]
     Active Substance: CLONAZEPAM
     Indication: DEPRESSION
     Dosage: 1 DF, QHS
     Route: 065
  2. TRILEPTAL [Suspect]
     Active Substance: OXCARBAZEPINE
     Indication: OFF LABEL USE
  3. TRILEPTAL [Suspect]
     Active Substance: OXCARBAZEPINE
     Indication: BIPOLAR DISORDER
     Dosage: 1 DF, QHS
     Route: 065

REACTIONS (10)
  - Hypertension [Recovering/Resolving]
  - Lip oedema [Recovering/Resolving]
  - Memory impairment [Recovering/Resolving]
  - Neuroendocrine tumour [Recovering/Resolving]
  - Diarrhoea [Recovering/Resolving]
  - Depression [Recovering/Resolving]
  - Eyelid oedema [Recovering/Resolving]
  - Hypersensitivity [Recovering/Resolving]
  - Dizziness [Recovering/Resolving]
  - Dysstasia [Recovering/Resolving]
